FAERS Safety Report 14096743 (Version 3)
Quarter: 2017Q4

REPORT INFORMATION
  Report Type: Spontaneous
  Country: US (occurrence: US)
  Receive Date: 20171017
  Receipt Date: 20171128
  Transmission Date: 20180321
  Serious: No
  Sender: FDA-Public Use
  Company Number: US-ASTRAZENECA-2017SF03872

PATIENT
  Sex: Male
  Weight: 93 kg

DRUGS (8)
  1. TUDORZA PRESSAIR [Suspect]
     Active Substance: ACLIDINIUM BROMIDE
     Indication: PRODUCTIVE COUGH
     Route: 055
  2. TUDORZA PRESSAIR [Suspect]
     Active Substance: ACLIDINIUM BROMIDE
     Indication: PRODUCTIVE COUGH
     Route: 055
     Dates: start: 20171005
  3. SYMBICORT [Suspect]
     Active Substance: BUDESONIDE\FORMOTEROL FUMARATE DIHYDRATE
     Indication: PRODUCTIVE COUGH
     Dosage: 160/4.5MCG 2 PUFFS, TWO TIMES A DAY
     Route: 055
     Dates: start: 20171005
  4. TUDORZA PRESSAIR [Suspect]
     Active Substance: ACLIDINIUM BROMIDE
     Indication: PRODUCTIVE COUGH
     Route: 055
  5. TUDORZA PRESSAIR [Suspect]
     Active Substance: ACLIDINIUM BROMIDE
     Indication: LUNG DISORDER
     Route: 055
  6. TUDORZA PRESSAIR [Suspect]
     Active Substance: ACLIDINIUM BROMIDE
     Indication: PRODUCTIVE COUGH
     Route: 055
     Dates: start: 20171005
  7. TUDORZA PRESSAIR [Suspect]
     Active Substance: ACLIDINIUM BROMIDE
     Indication: LUNG DISORDER
     Route: 055
     Dates: start: 20171005
  8. FLUTICASONE PROPIONATE. [Concomitant]
     Active Substance: FLUTICASONE PROPIONATE
     Indication: RHINORRHOEA
     Dosage: 1 SQUEEZE TO EACH NOSTRIL BID
     Route: 045
     Dates: start: 20171005

REACTIONS (8)
  - Cough [Unknown]
  - Intentional device misuse [Unknown]
  - Productive cough [Unknown]
  - Feeling abnormal [Unknown]
  - Rhinorrhoea [Unknown]
  - Product use in unapproved indication [Unknown]
  - Off label use [Unknown]
  - Device defective [Unknown]
